FAERS Safety Report 16887248 (Version 2)
Quarter: 2019Q4

REPORT INFORMATION
  Report Type: Spontaneous
  Country: US (occurrence: US)
  Receive Date: 20191004
  Receipt Date: 20191219
  Transmission Date: 20200122
  Serious: Yes (Hospitalization, Other)
  Sender: FDA-Public Use
  Company Number: US-009507513-1910USA001514

PATIENT
  Age: 80 Year
  Sex: Male
  Weight: 78.91 kg

DRUGS (3)
  1. ASMANEX [Suspect]
     Active Substance: MOMETASONE FUROATE
     Indication: LUNG DISORDER
     Dosage: ONE PUFF TWICE A DAY, IN THE MORNING AND NIGHT
     Route: 055
     Dates: start: 2017
  2. ASMANEX [Suspect]
     Active Substance: MOMETASONE FUROATE
     Indication: RESPIRATION ABNORMAL
  3. ASMANEX [Suspect]
     Active Substance: MOMETASONE FUROATE
     Indication: PULMONARY CONGESTION

REACTIONS (10)
  - Renal disorder [Unknown]
  - Product dose omission [Unknown]
  - Cardiac pacemaker insertion [Recovering/Resolving]
  - Product quality issue [Unknown]
  - Diabetes mellitus [Unknown]
  - Cardiac failure congestive [Unknown]
  - Atrial fibrillation [Unknown]
  - Pneumonia [Unknown]
  - Thyroid disorder [Unknown]
  - Cardiac disorder [Unknown]

NARRATIVE: CASE EVENT DATE: 201802
